FAERS Safety Report 22109962 (Version 3)
Quarter: 2024Q3

REPORT INFORMATION
  Report Type: Spontaneous
  Country: AR (occurrence: AR)
  Receive Date: 20230317
  Receipt Date: 20240709
  Transmission Date: 20241016
  Serious: Yes (Other)
  Sender: PFIZER
  Company Number: AR-PFIZER INC-PV202300050973

PATIENT
  Age: 73 Year
  Sex: Female

DRUGS (2)
  1. IBRANCE [Suspect]
     Active Substance: PALBOCICLIB
     Indication: Breast cancer metastatic
     Dosage: 100 MG, CYCLIC (DAILY, 3X1 SCHEME)
     Dates: start: 20180713
  2. FULVESTRANT [Suspect]
     Active Substance: FULVESTRANT

REACTIONS (6)
  - Cerebrovascular accident [Unknown]
  - Thrombosis [Unknown]
  - Deafness [Unknown]
  - Memory impairment [Unknown]
  - Injection site pain [Unknown]
  - Influenza [Unknown]

NARRATIVE: CASE EVENT DATE: 20230101
